FAERS Safety Report 13728918 (Version 1)
Quarter: 2017Q3

REPORT INFORMATION
  Report Type: Spontaneous
  Country: CH (occurrence: CH)
  Receive Date: 20170707
  Receipt Date: 20170707
  Transmission Date: 20171127
  Serious: Yes (Other)
  Sender: FDA-Public Use
  Company Number: CH-BEH-2017081920

PATIENT
  Sex: Female
  Weight: 66 kg

DRUGS (2)
  1. PRIVIGEN [Suspect]
     Active Substance: HUMAN IMMUNOGLOBULIN G
     Dosage: 2 G/KG PER CYCLE
     Route: 042
  2. PRIVIGEN [Suspect]
     Active Substance: HUMAN IMMUNOGLOBULIN G
     Indication: INCLUSION BODY MYOSITIS
     Dosage: 0.8 G/KG
     Route: 042

REACTIONS (3)
  - Fall [Unknown]
  - Gait disturbance [Unknown]
  - Asthenia [Unknown]
